FAERS Safety Report 21036024 (Version 1)
Quarter: 2022Q3

REPORT INFORMATION
  Report Type: Spontaneous
  Country: US (occurrence: US)
  Receive Date: 20220701
  Receipt Date: 20220701
  Transmission Date: 20221026
  Serious: No
  Sender: FDA-Public Use
  Company Number: US-KRAMERLABS-2021-US-025986

PATIENT
  Age: 74 Year
  Sex: Male
  Weight: 83.46 kg

DRUGS (4)
  1. NIZORAL A-D [Suspect]
     Active Substance: KETOCONAZOLE
     Indication: Product used for unknown indication
     Dosage: USED PRODUCT 3 TIMES IN A WEEK
     Route: 061
     Dates: start: 20211125
  2. Flonase mist [Concomitant]
  3. MINERALS\VITAMINS [Concomitant]
     Active Substance: MINERALS\VITAMINS
  4. TRIAMTERENE [Concomitant]
     Active Substance: TRIAMTERENE

REACTIONS (4)
  - Hair texture abnormal [Unknown]
  - Product odour abnormal [Unknown]
  - Intentional product misuse [Unknown]
  - Inappropriate schedule of product administration [Unknown]

NARRATIVE: CASE EVENT DATE: 20211125
